FAERS Safety Report 6690372-X (Version None)
Quarter: 2010Q2

REPORT INFORMATION
  Report Type: 
  Country: None (occurrence: None)
  Receive Date: 20100421
  Receipt Date: 20100408
  Transmission Date: 20101027
  Serious: Yes (Hospitalization)
  Sender: FDA-Public Use
  Company Number: US-ELI_LILLY_AND_COMPANY-US201002002278

PATIENT
  Sex: Male

DRUGS (11)
  1. BYETTA [Suspect]
     Indication: TYPE 2 DIABETES MELLITUS
     Dosage: 5 UG, 2/D
     Dates: start: 20091123
  2. CIALIS [Concomitant]
     Dosage: UNK, AS NEEDED
  3. DONNATAL [Concomitant]
     Dosage: UNK, DAILY (1/D)
  4. HYTRIN [Concomitant]
  5. KEPPRA [Concomitant]
     Dosage: 250 MG, 2/D
  6. PROTONIX [Concomitant]
     Dosage: 40 MG, DAILY (1/D)
  7. VERAPAMIL [Concomitant]
     Dosage: 360 MG, DAILY (1/D)
  8. VYTORIN [Concomitant]
     Dosage: UNK, DAILY (1/D)
  9. ZANAFLEX [Concomitant]
     Indication: MIGRAINE
     Dosage: 2 MG, 3/D
  10. VERAMYST [Concomitant]
     Route: 045
  11. TORADOL [Concomitant]
     Indication: PAIN
     Dosage: 60 MG, DAILY (1/D)

REACTIONS (7)
  - ANGIODYSPLASIA [None]
  - ARTHRALGIA [None]
  - DYSPNOEA [None]
  - FATIGUE [None]
  - MALLORY-WEISS SYNDROME [None]
  - PRESYNCOPE [None]
  - UPPER GASTROINTESTINAL HAEMORRHAGE [None]
